FAERS Safety Report 4527666-X (Version None)
Quarter: 2004Q4

REPORT INFORMATION
  Report Type: 
  Country: None (occurrence: None)
  Receive Date: 20041130
  Receipt Date: 20040827
  Transmission Date: 20050328
  Serious: No
  Sender: FDA-Public Use
  Company Number: WAES 0408USA02083

PATIENT
  Age: 65 Year
  Sex: Male
  Weight: 85.7298 kg

DRUGS (3)
  1. ZETIA [Suspect]
     Indication: DYSLIPIDAEMIA
     Dosage: 10 MG/ DAILY/ PO
     Route: 048
     Dates: start: 20040121, end: 20040302
  2. LIPITOR [Concomitant]
  3. COLCHICINE [Concomitant]

REACTIONS (3)
  - GOUTY ARTHRITIS [None]
  - HYPERTENSION [None]
  - PAIN [None]
